FAERS Safety Report 25598470 (Version 1)
Quarter: 2025Q3

REPORT INFORMATION
  Report Type: Spontaneous
  Country: US (occurrence: US)
  Receive Date: 20250723
  Receipt Date: 20250723
  Transmission Date: 20251020
  Serious: No
  Sender: DAIICHI
  Company Number: US-DAIICHI SANKYO, INC.-DS-2025-153953-USAA

PATIENT
  Age: 84 Year
  Sex: Female

DRUGS (4)
  1. ENHERTU [Suspect]
     Active Substance: FAM-TRASTUZUMAB DERUXTECAN-NXKI
     Indication: Neoplasm malignant
     Dosage: UNK UNK, ONCE EVERY 3 WK
     Route: 042
  2. ENHERTU [Suspect]
     Active Substance: FAM-TRASTUZUMAB DERUXTECAN-NXKI
     Dosage: UNK UNK, ONCE EVERY 3 WK
     Route: 042
  3. ENHERTU [Suspect]
     Active Substance: FAM-TRASTUZUMAB DERUXTECAN-NXKI
     Dosage: UNK UNK, ONCE EVERY 3 WK
     Route: 042
  4. ENHERTU [Suspect]
     Active Substance: FAM-TRASTUZUMAB DERUXTECAN-NXKI
     Dosage: UNK UNK, ONCE EVERY 3 WK
     Route: 042

REACTIONS (3)
  - Drug intolerance [Unknown]
  - Constipation [Unknown]
  - Fatigue [Unknown]
